FAERS Safety Report 4932566-7 (Version None)
Quarter: 2006Q1

REPORT INFORMATION
  Report Type: 
  Country: None (occurrence: None)
  Receive Date: 20060301
  Receipt Date: 20060215
  Transmission Date: 20060701
  Serious: Yes (Hospitalization, Other)
  Sender: FDA-Public Use
  Company Number: 219836

PATIENT
  Age: 46 Year
  Sex: Female
  Weight: 80 kg

DRUGS (2)
  1. HERCEPTIN [Suspect]
     Indication: METASTASES TO LIVER
     Dosage: 6 MG/KG, Q3W, INTRAVENOUS
     Route: 042
     Dates: start: 20031029
  2. PACLITAXEL [Suspect]
     Indication: METASTASES TO LIVER
     Dosage: 175 MG/M2, Q3W, INTRAVENOUS
     Route: 042
     Dates: start: 20031029, end: 20050929

REACTIONS (7)
  - ALANINE AMINOTRANSFERASE INCREASED [None]
  - ASPARTATE AMINOTRANSFERASE INCREASED [None]
  - BLOOD BILIRUBIN INCREASED [None]
  - METASTASES TO LYMPH NODES [None]
  - NEOPLASM RECURRENCE [None]
  - PULMONARY FIBROSIS [None]
  - SOMNOLENCE [None]
